FAERS Safety Report 10094946 (Version 1)
Quarter: 2014Q2

REPORT INFORMATION
  Report Type: Spontaneous
  Country: US (occurrence: None)
  Receive Date: 20140418
  Receipt Date: 20140418
  Transmission Date: 20141212
  Serious: No
  Sender: FDA-Public Use
  Company Number: DL2014-0230

PATIENT
  Age: 35 Year
  Sex: Female

DRUGS (3)
  1. MIFEPRISTONE [Suspect]
     Indication: ABORTION INDUCED
     Route: 048
     Dates: start: 20140208
  2. MISOPROSTOL [Suspect]
  3. METRONIDAZOLE [Concomitant]
     Dosage: 2 TABS TAKEN AFTER MIFEPRISTONE AND PRIOR TO MIOSPROSTOL

REACTIONS (2)
  - Abortion incomplete [None]
  - Haemorrhage [None]
